FAERS Safety Report 22070086 (Version 4)
Quarter: 2023Q2

REPORT INFORMATION
  Report Type: Report from Study
  Country: CN (occurrence: CN)
  Receive Date: 20230307
  Receipt Date: 20230630
  Transmission Date: 20230722
  Serious: No
  Sender: FDA-Public Use
  Company Number: CN-GILEAD-2023-0619342

PATIENT
  Sex: Male
  Weight: 70 kg

DRUGS (21)
  1. BICTEGRAVIR\EMTRICITABINE\TENOFOVIR ALAFENAMIDE [Suspect]
     Active Substance: BICTEGRAVIR\EMTRICITABINE\TENOFOVIR ALAFENAMIDE
     Indication: HIV infection
     Dosage: 1 DOSAGE FORM, QD
     Route: 048
     Dates: start: 20220129
  2. SULFAMETHOXAZOLE [Concomitant]
     Active Substance: SULFAMETHOXAZOLE
     Indication: Pneumocystis jirovecii pneumonia
     Dosage: UNK
     Route: 048
     Dates: start: 20220209, end: 20220214
  3. CEFOTAXIME SODIUM [Concomitant]
     Active Substance: CEFOTAXIME SODIUM
     Indication: Pneumonia
     Route: 042
     Dates: start: 20220209, end: 20220214
  4. FLUCONAZOLE [Concomitant]
     Active Substance: FLUCONAZOLE
     Indication: Cryptococcosis
     Route: 048
     Dates: start: 20220209, end: 20220214
  5. OMEPRAZOLE SODIUM [Concomitant]
     Active Substance: OMEPRAZOLE SODIUM
     Indication: HIV infection
     Route: 042
     Dates: start: 20220209, end: 20220214
  6. SHEN QI FU ZHENG [Concomitant]
     Indication: HIV infection
     Route: 042
     Dates: start: 20220209, end: 20220214
  7. ANDROGRAPHOLIDE [Concomitant]
     Active Substance: ANDROGRAPHOLIDE
     Indication: Pneumonia
     Route: 042
     Dates: start: 20220209, end: 20220214
  8. ALANYL GLUTAMINE [Concomitant]
     Active Substance: ALANYL GLUTAMINE
     Indication: Hypoproteinaemia
     Route: 042
     Dates: start: 20220120, end: 20220203
  9. CEFOTAXIME SODIUM\SULBACTAM SODIUM [Concomitant]
     Active Substance: CEFOTAXIME SODIUM\SULBACTAM SODIUM
     Indication: Pneumonia
     Route: 042
     Dates: start: 20220120, end: 20220203
  10. SULFAMETHOXAZOLE [Concomitant]
     Active Substance: SULFAMETHOXAZOLE
     Indication: Pneumocystis jirovecii pneumonia
     Route: 048
     Dates: start: 20220120, end: 20220203
  11. ALBUMIN HUMAN [Concomitant]
     Active Substance: ALBUMIN HUMAN
     Indication: Hypoproteinaemia
     Route: 042
     Dates: start: 20220121, end: 20220203
  12. GANCICLOVIR [Concomitant]
     Active Substance: GANCICLOVIR
     Indication: Epstein-Barr virus infection
     Route: 042
     Dates: start: 20220124, end: 20220203
  13. METHYLPREDNISOLONE SODIUM SUCCINATE [Concomitant]
     Active Substance: METHYLPREDNISOLONE SODIUM SUCCINATE
     Indication: Pneumocystis jirovecii pneumonia
     Route: 042
     Dates: start: 20220126, end: 20220203
  14. AMILORIDE HYDROCHLORIDE\HYDROCHLOROTHIAZIDE [Concomitant]
     Active Substance: AMILORIDE HYDROCHLORIDE\HYDROCHLOROTHIAZIDE
     Indication: Pneumocystis jirovecii pneumonia
     Route: 048
     Dates: start: 20220127, end: 20220203
  15. LABUVIRTIDE [Concomitant]
     Active Substance: LABUVIRTIDE
     Indication: HIV infection
     Route: 042
     Dates: start: 20220201, end: 20220201
  16. PHOSPHOLIPID [Concomitant]
     Active Substance: PHOSPHOLIPID
     Indication: Hepatic function abnormal
     Route: 042
     Dates: start: 20220201, end: 20220203
  17. SODIUM BICARBONATE [Concomitant]
     Active Substance: SODIUM BICARBONATE
     Indication: HIV infection
     Route: 042
     Dates: start: 20220201, end: 20220201
  18. CEFIXIME [Concomitant]
     Active Substance: CEFIXIME
     Indication: Pneumonia
     Route: 048
     Dates: start: 20220202, end: 20220202
  19. HERBALS\DIAMMONIUM GLYCYRRHIZINATE [Concomitant]
     Active Substance: HERBALS\DIAMMONIUM GLYCYRRHIZINATE
     Indication: Hepatic function abnormal
     Route: 048
     Dates: start: 20220202, end: 20220202
  20. ILAPRAZOLE [Concomitant]
     Active Substance: ILAPRAZOLE
     Indication: HIV infection
     Route: 048
     Dates: start: 20220202, end: 20220202
  21. PREDNISONE ACETATE [Concomitant]
     Active Substance: PREDNISONE ACETATE
     Indication: Pneumocystis jirovecii pneumonia
     Route: 048
     Dates: start: 20220202, end: 20220202

REACTIONS (3)
  - Epstein-Barr virus infection [Recovering/Resolving]
  - Cytomegalovirus infection [Recovering/Resolving]
  - Hepatic function abnormal [Recovering/Resolving]

NARRATIVE: CASE EVENT DATE: 20220203
